FAERS Safety Report 10015875 (Version 3)
Quarter: 2014Q2

REPORT INFORMATION
  Report Type: Report from Study
  Country: VN (occurrence: VN)
  Receive Date: 20140317
  Receipt Date: 20140509
  Transmission Date: 20141212
  Serious: Yes (Death, Life-Threatening, Hospitalization)
  Sender: FDA-Public Use
  Company Number: VN-GLAXOSMITHKLINE-B0972532B

PATIENT
  Age: 78 Year
  Sex: Male
  Weight: 62 kg

DRUGS (16)
  1. FLUTICASONE FUROATE [Suspect]
     Indication: CHRONIC OBSTRUCTIVE PULMONARY DISEASE
     Dates: start: 20130703, end: 20140311
  2. METHYLPREDNISOLONE [Concomitant]
     Indication: CELLULITIS ORBITAL
     Dosage: 32MG PER DAY
     Route: 048
     Dates: start: 20140220, end: 20140305
  3. OMEPRAZOLE [Concomitant]
     Indication: GASTRITIS PROPHYLAXIS
     Dosage: 20MG PER DAY
     Route: 048
     Dates: start: 20140220, end: 20140305
  4. PREDNISOLONE [Concomitant]
     Indication: CONJUNCTIVITIS
     Dosage: 168DROP CUMULATIVE DOSE
     Dates: start: 20140220, end: 20140305
  5. CEFUROXIM [Concomitant]
     Indication: SINUSITIS
     Dosage: 500MG TWICE PER DAY
     Route: 048
     Dates: start: 20140227, end: 201403
  6. EBASTINE [Concomitant]
     Indication: SINUSITIS
     Dosage: 10MG PER DAY
     Route: 048
     Dates: start: 20140227, end: 201403
  7. CARBOCISTEIN [Concomitant]
     Indication: SINUSITIS
     Dosage: 375MG TWICE PER DAY
     Route: 048
     Dates: start: 20140227, end: 201403
  8. SIMVASTATIN [Concomitant]
     Indication: HYPERCHOLESTEROLAEMIA
     Dosage: 20MG PER DAY
     Route: 048
     Dates: start: 20130628, end: 201403
  9. DILTIAZEM [Concomitant]
     Indication: HYPERTENSION
     Dosage: 60MG THREE TIMES PER DAY
     Route: 048
     Dates: start: 20130731, end: 201403
  10. NITROGLYCERIN [Concomitant]
     Indication: MYOCARDIAL ISCHAEMIA
     Dosage: 2.6MG TWICE PER DAY
     Route: 048
     Dates: start: 20130731, end: 201403
  11. CLOPIDOGREL [Concomitant]
     Indication: ANTIPLATELET THERAPY
     Dosage: 75MG PER DAY
     Route: 048
     Dates: start: 20130731, end: 201403
  12. GLICLAZIDE [Concomitant]
     Indication: DIABETES MELLITUS
     Dosage: 30MG PER DAY
     Route: 048
     Dates: start: 20100518, end: 201403
  13. IRBESARTAN [Concomitant]
     Indication: HYPERTENSION
     Route: 048
     Dates: start: 20131002, end: 201403
  14. MOXIFLOXACIN [Concomitant]
     Indication: CONJUNCTIVITIS
     Dosage: 30DROP CUMULATIVE DOSE
     Route: 047
     Dates: start: 20140205, end: 20140209
  15. LYSOZYME CHLORIDE [Concomitant]
     Indication: CONJUNCTIVITIS
     Dosage: 90MG THREE TIMES PER DAY
     Route: 048
     Dates: start: 20140205, end: 20140209
  16. PREDNISOLONE ACETATE [Concomitant]
     Indication: CONJUNCTIVITIS
     Dosage: 30DROP CUMULATIVE DOSE
     Dates: start: 20140205, end: 20140209

REACTIONS (2)
  - Pneumonia [Fatal]
  - Respiratory failure [Fatal]
